FAERS Safety Report 12939732 (Version 1)
Quarter: 2016Q4

REPORT INFORMATION
  Report Type: Spontaneous
  Country: US (occurrence: US)
  Receive Date: 20161114
  Receipt Date: 20161114
  Transmission Date: 20170207
  Serious: No
  Sender: FDA-Public Use
  Company Number: None

PATIENT
  Age: 24 Year
  Sex: Female
  Weight: 102.7 kg

DRUGS (1)
  1. ENTYVIO [Suspect]
     Active Substance: VEDOLIZUMAB
     Indication: COLITIS ULCERATIVE
     Dosage: OTHER FREQUENCY:MONTHLY?INTRAVENOUS (NOT OTHERWISE SPECIFIED)?
     Route: 042
     Dates: start: 20161018, end: 20161018

REACTIONS (5)
  - Dyspnoea [None]
  - Chest discomfort [None]
  - Paraesthesia [None]
  - Paraesthesia oral [None]
  - Pharyngeal paraesthesia [None]

NARRATIVE: CASE EVENT DATE: 20161018
